FAERS Safety Report 9772015 (Version 1)
Quarter: 2013Q4

REPORT INFORMATION
  Report Type: Report from Study
  Country: US (occurrence: US)
  Receive Date: 20131219
  Receipt Date: 20131219
  Transmission Date: 20140711
  Serious: Yes (Hospitalization)
  Sender: FDA-Public Use
  Company Number: US-SA-2013SA132203

PATIENT
  Age: 67 Year
  Sex: Male
  Weight: 116.7 kg

DRUGS (11)
  1. LANTUS [Suspect]
     Route: 058
     Dates: start: 20130513
  2. BYETTA [Suspect]
     Route: 065
     Dates: start: 20130725
  3. METFORMIN [Suspect]
     Route: 065
     Dates: start: 20130513
  4. RANEXA [Concomitant]
  5. ORGANIC NITRATES [Concomitant]
  6. HMG COA REDUCTASE INHIBITORS [Concomitant]
  7. PLATELET AGGREGATION INHIBITORS [Concomitant]
  8. ASA [Concomitant]
  9. THYROID THERAPY [Concomitant]
  10. ACE INHIBITOR NOS [Concomitant]
  11. ALL OTHER THERAPEUTIC PRODUCTS [Concomitant]

REACTIONS (3)
  - Otosclerosis [Unknown]
  - Myocardial infarction [Unknown]
  - Coronary artery stenosis [Unknown]
